FAERS Safety Report 21054353 (Version 1)
Quarter: 2022Q3

REPORT INFORMATION
  Report Type: Spontaneous
  Country: US (occurrence: US)
  Receive Date: 20220707
  Receipt Date: 20220707
  Transmission Date: 20221027
  Serious: No
  Sender: FDA-Public Use
  Company Number: US-PFIZER INC-202200405937

PATIENT
  Age: 31 Year
  Sex: Female

DRUGS (2)
  1. ZIRABEV [Suspect]
     Active Substance: BEVACIZUMAB-BVZR
     Indication: Cervix carcinoma
     Dosage: 1500 MG, EVERY 3 WEEKS
     Route: 042
  2. ZIRABEV [Suspect]
     Active Substance: BEVACIZUMAB-BVZR
     Dosage: 1200 MG

REACTIONS (3)
  - Off label use [Unknown]
  - Intentional product use issue [Unknown]
  - Weight decreased [Unknown]
